FAERS Safety Report 19805754 (Version 1)
Quarter: 2021Q3

REPORT INFORMATION
  Report Type: Report from Study
  Country: FR (occurrence: FR)
  Receive Date: 20210909
  Receipt Date: 20210909
  Transmission Date: 20211014
  Serious: Yes (Hospitalization, Other)
  Sender: FDA-Public Use
  Company Number: FR-ROCHE-2538976

PATIENT
  Age: 35 Year
  Sex: Female

DRUGS (2)
  1. ATEZOLIZUMAB. [Suspect]
     Active Substance: ATEZOLIZUMAB
     Dosage: FIRST CYCLE?1200 MG ON 03?JAN?2020 FOR A CUMULATIVE DOSE BEFORE EVENT ONSET OF 3600 MG.
     Route: 042
     Dates: start: 20191122
  2. ATEZOLIZUMAB. [Suspect]
     Active Substance: ATEZOLIZUMAB
     Indication: CERVIX CARCINOMA
     Dosage: LAST CYCLE OF TREATMENT (C3)?CUMULATIVE DOSE BEFORE EVENT ONSET OF 3600 MG.
     Route: 042
     Dates: start: 20200103

REACTIONS (3)
  - Hyperthyroidism [Recovered/Resolved with Sequelae]
  - Radiation proctitis [Recovered/Resolved]
  - Hypothyroidism [Recovered/Resolved with Sequelae]

NARRATIVE: CASE EVENT DATE: 20200124
